FAERS Safety Report 8570113-1 (Version None)
Quarter: 2012Q3

REPORT INFORMATION
  Report Type: 
  Country: None (occurrence: None)
  Receive Date: 20120803
  Receipt Date: 20120725
  Transmission Date: 20120928
  Serious: Yes (Other)
  Sender: FDA-Public Use
  Company Number: US-ASTRAZENECA-2012SE53040

PATIENT
  Age: 64 Year
  Sex: Male
  Weight: 116.1 kg

DRUGS (12)
  1. OMEPRAZOLE [Concomitant]
     Route: 048
  2. ATORVASTATIN [Concomitant]
     Route: 048
  3. ACETYLSALICYLIC ACID, DIPYRIDAMOLE [Concomitant]
     Dosage: 200/25 TWO TIMES DAILY
     Route: 048
  4. IPRATROPIUM BROMIDE AND ALBUTEROL SULFATE [Concomitant]
     Dosage: 3 ML BY NEBULIZATION EVERY FOUR HOURS AS NEEDED
  5. CITALOPRAM HYDROBROMIDE [Concomitant]
     Route: 048
  6. SINGULAIR [Concomitant]
     Route: 048
  7. TRAMADOL HCL [Concomitant]
  8. LISINOPRIL AND HYDROCHLOROTHIAZIDE [Suspect]
     Dosage: 20/12.5 MG TWO TABLETS BY MOUTH DAILY
     Route: 048
  9. DICLOFENAC SODIUM [Concomitant]
     Route: 048
  10. TIOTROPIUM BROMIDE [Concomitant]
     Dosage: 18 MCG INTO THE LUNGS DAILY
     Route: 048
  11. SYMBICORT [Suspect]
     Dosage: 160/4.5 MCG TWO PUFFS INTO THE LUNGS TWO TIMES DAILY
     Route: 055
  12. ALBUTEROL [Concomitant]
     Dosage: TWO PUFFS INTO THE LUNGS EVERY SIX HOURS AS NEEDED
     Route: 055

REACTIONS (15)
  - CARDIAC DISORDER [None]
  - CORONARY ARTERY OCCLUSION [None]
  - EMPHYSEMA [None]
  - GASTRIC DISORDER [None]
  - HYPERTENSION [None]
  - CATARACT [None]
  - OBESITY [None]
  - ARTHRALGIA [None]
  - MUSCLE SPASMS [None]
  - ABDOMINAL PAIN [None]
  - ATRIOVENTRICULAR BLOCK [None]
  - GLAUCOMA [None]
  - DYSPEPSIA [None]
  - CORONARY ARTERY DISEASE [None]
  - CONSTIPATION [None]
